FAERS Safety Report 6891433-2 (Version None)
Quarter: 2010Q3

REPORT INFORMATION
  Report Type: 
  Country: None (occurrence: None)
  Receive Date: 20100731
  Receipt Date: 20070911
  Transmission Date: 20110219
  Serious: No
  Sender: FDA-Public Use
  Company Number: US-PFIZER INC-2007060606

PATIENT
  Sex: Male
  Weight: 76.2 kg

DRUGS (4)
  1. CAVERJECT [Suspect]
     Indication: ERECTILE DYSFUNCTION
     Dates: start: 20070601, end: 20070723
  2. NEURONTIN [Concomitant]
  3. MULTI-VITAMINS [Concomitant]
  4. MOTRIN [Concomitant]

REACTIONS (2)
  - DEVICE MALFUNCTION [None]
  - INJECTION SITE PAIN [None]
